FAERS Safety Report 5100004-X (Version None)
Quarter: 2006Q3

REPORT INFORMATION
  Report Type: 
  Country: None (occurrence: None)
  Receive Date: 20060906
  Receipt Date: 20060906
  Transmission Date: 20061208
  Serious: Yes (Hospitalization)
  Sender: FDA-Public Use
  Company Number: None

PATIENT
  Sex: Male
  Weight: 72.6 kg

DRUGS (3)
  1. ELOXATIN [Suspect]
     Dosage: 160 MG
     Dates: start: 20060823, end: 20060823
  2. FLUOROURACIL [Suspect]
     Dosage: 5375 MG
     Dates: end: 20060823
  3. LEUCOVORIN CALCIUM [Suspect]
     Dosage: 775 MG
     Dates: end: 20060823

REACTIONS (14)
  - ATRIAL FIBRILLATION [None]
  - CEREBRAL ATROPHY [None]
  - CEREBRAL VENTRICLE DILATATION [None]
  - DEHYDRATION [None]
  - DRY MOUTH [None]
  - EYELID PTOSIS [None]
  - GENERAL PHYSICAL HEALTH DETERIORATION [None]
  - GUILLAIN-BARRE SYNDROME [None]
  - HYPERHIDROSIS [None]
  - HYPOGLYCAEMIA [None]
  - MIOSIS [None]
  - OSTEOARTHRITIS [None]
  - PANCYTOPENIA [None]
  - RENAL IMPAIRMENT [None]
